FAERS Safety Report 6460372-3 (Version None)
Quarter: 2009Q4

REPORT INFORMATION
  Report Type: 
  Country: None (occurrence: None)
  Receive Date: 20091130
  Receipt Date: 20091125
  Transmission Date: 20100525
  Serious: Yes (Death, Other)
  Sender: FDA-Public Use
  Company Number: MX-ELI_LILLY_AND_COMPANY-MX200904000999

PATIENT
  Age: 38 Year
  Sex: Male

DRUGS (5)
  1. XIGRIS [Suspect]
     Indication: ACUTE RESPIRATORY DISTRESS SYNDROME
     Dosage: 20 MG, OTHER
     Route: 042
     Dates: start: 20090301, end: 20090101
  2. METOCLOPRAMIDE [Concomitant]
  3. RANITIDINE [Concomitant]
  4. PROPOFOL [Concomitant]
  5. ANTIBIOTICS [Concomitant]

REACTIONS (5)
  - ACUTE RESPIRATORY FAILURE [None]
  - BRADYCARDIA [None]
  - HYPERSENSITIVITY [None]
  - HYPOTENSION [None]
  - OFF LABEL USE [None]
